FAERS Safety Report 24867443 (Version 1)
Quarter: 2025Q1

REPORT INFORMATION
  Report Type: Spontaneous
  Country: US (occurrence: None)
  Receive Date: 20250117
  Receipt Date: 20250117
  Transmission Date: 20250409
  Serious: Yes (unspecified)
  Sender: FDA-CTU
  Company Number: None

PATIENT
  Age: 75 Year
  Sex: Male
  Weight: 88.45 kg

DRUGS (7)
  1. REGRANEX [Suspect]
     Active Substance: BECAPLERMIN
     Indication: Neuropathic ulcer
     Dosage: FREQUENCY : DAILY;?
     Route: 061
     Dates: start: 20250102, end: 20250105
  2. Aspirin 81 mg Chewevle Tablets [Concomitant]
  3. ATORVASTATIN [Concomitant]
     Active Substance: ATORVASTATIN
  4. Biktarvy 501200/25 Tablets [Concomitant]
  5. Losartan 100 Tablets [Concomitant]
  6. Gentamlcin 1% Ointnient [Concomitant]
  7. KETOCONAZOLE [Concomitant]
     Active Substance: KETOCONAZOLE

REACTIONS (5)
  - Neuropathic ulcer [None]
  - Condition aggravated [None]
  - Erythema [None]
  - Swelling [None]
  - Therapy cessation [None]
